FAERS Safety Report 8896087 (Version 5)
Quarter: 2013Q1

REPORT INFORMATION
  Report Type: Report from Study
  Country: CA (occurrence: CA)
  Receive Date: 20121108
  Receipt Date: 20130319
  Transmission Date: 20140127
  Serious: Yes (Life-Threatening, Hospitalization, Other)
  Sender: FDA-Public Use
  Company Number: CA-ROCHE-1152565

PATIENT
  Age: 77 Year
  Sex: Female
  Weight: 61.2 kg

DRUGS (4)
  1. ACTEMRA [Suspect]
     Indication: RHEUMATOID ARTHRITIS
     Route: 042
     Dates: start: 20120808
  2. ACTEMRA [Suspect]
     Route: 042
     Dates: start: 201209, end: 20130202
  3. LANSOPRAZOLE [Concomitant]
  4. DOXYCYCLINE [Concomitant]

REACTIONS (7)
  - Herpes simplex meningoencephalitis [Recovered/Resolved]
  - Loss of consciousness [Recovered/Resolved]
  - Hypotension [Unknown]
  - Ophthalmic herpes zoster [Recovered/Resolved]
  - Vomiting [Not Recovered/Not Resolved]
  - Eye swelling [Unknown]
  - Weight increased [Not Recovered/Not Resolved]
